FAERS Safety Report 10251348 (Version 1)
Quarter: 2014Q2

REPORT INFORMATION
  Report Type: Spontaneous
  Country: US (occurrence: US)
  Receive Date: 20140622
  Receipt Date: 20140622
  Transmission Date: 20141212
  Serious: No
  Sender: FDA-Public Use
  Company Number: US-009507513-1405USA004844

PATIENT
  Sex: Female

DRUGS (2)
  1. CLARITIN CHEWABLE TABLETS [Suspect]
     Indication: SEASONAL ALLERGY
     Dosage: 5 MG, UNKNOWN
     Route: 048
     Dates: start: 20140425
  2. CLARITIN CHEWABLE TABLETS [Suspect]
     Indication: NASOPHARYNGITIS

REACTIONS (3)
  - Nasopharyngitis [Unknown]
  - Therapeutic response changed [Unknown]
  - Off label use [Recovering/Resolving]
